FAERS Safety Report 4900435-4 (Version None)
Quarter: 2006Q1

REPORT INFORMATION
  Report Type: 
  Country: None (occurrence: None)
  Receive Date: 20060201
  Receipt Date: 20060117
  Transmission Date: 20060701
  Serious: Yes (Other)
  Sender: FDA-Public Use
  Company Number: ENTC2006-0028

PATIENT
  Age: 63 Year
  Sex: Male

DRUGS (1)
  1. STALEVO 150 [Suspect]
     Indication: PARKINSON'S DISEASE
     Dosage: 100, 4-5 TIMES/DAY, ORAL
     Route: 048
     Dates: start: 20030601

REACTIONS (4)
  - CATARACT [None]
  - CONDITION AGGRAVATED [None]
  - DIPLOPIA [None]
  - GLAUCOMA [None]
